FAERS Safety Report 11267631 (Version 1)
Quarter: 2015Q3

REPORT INFORMATION
  Report Type: Spontaneous
  Country: IE (occurrence: IE)
  Receive Date: 20150713
  Receipt Date: 20150713
  Transmission Date: 20151125
  Serious: Yes (Death, Other)
  Sender: FDA-Public Use
  Company Number: IE-GLAXOSMITHKLINE-IE2015099409

PATIENT
  Age: 65 Year
  Sex: Male

DRUGS (6)
  1. GAVISCON LIQUID SACHETS [Concomitant]
  2. EPILIM [Concomitant]
     Active Substance: VALPROATE SODIUM
     Dosage: 1 G, Z
     Dates: start: 2000
  3. SODIUM VALPROATE AGUETTANT [Concomitant]
     Dosage: 1 G, Z
  4. RISPERIDONE. [Concomitant]
     Active Substance: RISPERIDONE
  5. LAMICTAL [Suspect]
     Active Substance: LAMOTRIGINE
     Indication: EPILEPSY
     Dosage: 550 MG, Z
     Dates: start: 2000
  6. LOSEC [Concomitant]
     Active Substance: OMEPRAZOLE

REACTIONS (2)
  - Cardiac arrest [Fatal]
  - Toxicity to various agents [Fatal]

NARRATIVE: CASE EVENT DATE: 20130725
